FAERS Safety Report 8179358-6 (Version None)
Quarter: 2012Q1

REPORT INFORMATION
  Report Type: 
  Country: None (occurrence: None)
  Receive Date: 20120302
  Receipt Date: 20120221
  Transmission Date: 20120608
  Serious: Yes (Hospitalization, Other)
  Sender: FDA-Public Use
  Company Number: DE-JNJFOC-20110801870

PATIENT
  Age: 26 Year
  Sex: Female

DRUGS (5)
  1. TOPAMAX [Suspect]
     Indication: EPILEPSY
     Route: 048
     Dates: start: 20090101, end: 20110804
  2. LAMOTRIGINE [Concomitant]
     Route: 065
  3. FOLIC ACID [Concomitant]
     Route: 065
  4. ZONEGRAN [Concomitant]
     Route: 065
  5. THIAMINE HYDROCHLORIDE [Concomitant]
     Route: 065

REACTIONS (5)
  - BLINDNESS [None]
  - MENSTRUATION IRREGULAR [None]
  - HYPERSOMNIA [None]
  - GLAUCOMA [None]
  - SJOGREN'S SYNDROME [None]
